FAERS Safety Report 22301443 (Version 10)
Quarter: 2024Q1

REPORT INFORMATION
  Report Type: Report from Study
  Country: NL (occurrence: NL)
  Receive Date: 20230509
  Receipt Date: 20240131
  Transmission Date: 20240410
  Serious: Yes (Hospitalization, Other)
  Sender: FDA-Public Use
  Company Number: NL-ABBVIE-4752173

PATIENT
  Age: 62 Year
  Sex: Female

DRUGS (17)
  1. CARBIDOPA\LEVODOPA [Suspect]
     Active Substance: CARBIDOPA\LEVODOPA
     Indication: Parkinson^s disease
     Dosage: CD: 4.1 ML/H, DURATION TEXT: REMAINS AT 16 HOURS
     Route: 050
     Dates: start: 20230911, end: 20230911
  2. CARBIDOPA\LEVODOPA [Suspect]
     Active Substance: CARBIDOPA\LEVODOPA
     Dosage: CD: 4.0 ML/H, REMAIN ON 16 HOURS ?LAST ADMIN DATE : 2023
     Route: 050
     Dates: start: 20231017, end: 20240109
  3. CARBIDOPA\LEVODOPA [Suspect]
     Active Substance: CARBIDOPA\LEVODOPA
     Dosage: MD: 5.0 ML, CD: 3.4  ML/H, ED: 2.0 ML REMAINS AT 16 HOUR?LAST ADMIN DATE 2023
     Route: 050
     Dates: start: 20230328
  4. CARBIDOPA\LEVODOPA [Suspect]
     Active Substance: CARBIDOPA\LEVODOPA
     Dosage: MD: 7.5 ML, CD: 3.7  ML/H, ED: 2.5 ML; ADDITIONAL TUBE FILING: 2.5 ML REMAINS AT 16 HOURS FIRST A...
     Route: 050
  5. CARBIDOPA\LEVODOPA [Suspect]
     Active Substance: CARBIDOPA\LEVODOPA
     Dosage: MD: 7.5 ML, CD: 4.1 ML/H, ED: 2.5 ML, REMAINS AT 16 HOURS
     Route: 050
     Dates: start: 20230726, end: 20230727
  6. CARBIDOPA\LEVODOPA [Suspect]
     Active Substance: CARBIDOPA\LEVODOPA
     Dosage: CD: 4.0 ML/H, DURATION TEXT: REMAINS AT 16 HOURS?DOSE INCREASED
     Route: 050
     Dates: start: 20230731, end: 20230731
  7. CARBIDOPA\LEVODOPA [Suspect]
     Active Substance: CARBIDOPA\LEVODOPA
     Dosage: MD: 7.0 ML
     Route: 050
     Dates: start: 20240109, end: 20240110
  8. CARBIDOPA\LEVODOPA [Suspect]
     Active Substance: CARBIDOPA\LEVODOPA
     Dosage: MD: 7.5 ML, CD: 3.7  ML/H, ED: 2.5 ML; ADDITIONAL TUBE FILING: 2.5 ML
     Route: 050
  9. CARBIDOPA\LEVODOPA [Suspect]
     Active Substance: CARBIDOPA\LEVODOPA
     Dosage: MD:7.5ML
     Route: 050
     Dates: start: 20240117, end: 20240122
  10. CARBIDOPA\LEVODOPA [Suspect]
     Active Substance: CARBIDOPA\LEVODOPA
     Dosage: CD: 3.4 ML/HOUR, REMAINS AT 16 HOURS
     Route: 050
     Dates: start: 20230421, end: 20230421
  11. CARBIDOPA\LEVODOPA [Suspect]
     Active Substance: CARBIDOPA\LEVODOPA
     Dosage: REMAINS AT 16 HOURS
     Route: 050
  12. CARBIDOPA\LEVODOPA [Suspect]
     Active Substance: CARBIDOPA\LEVODOPA
     Dosage: MD: 6.5 ML, CD: 4.1 ML/H, ED: 2.5 ML
     Route: 050
     Dates: start: 20240110, end: 20240117
  13. CARBIDOPA\LEVODOPA [Suspect]
     Active Substance: CARBIDOPA\LEVODOPA
     Dosage: CD:4.2ML/H
     Route: 050
     Dates: start: 20240123
  14. CARBIDOPA\LEVODOPA [Suspect]
     Active Substance: CARBIDOPA\LEVODOPA
     Dosage: CD:4.2ML/H
     Route: 050
     Dates: start: 20240122, end: 20240123
  15. BENSERAZIDE HYDROCHLORIDE\LEVODOPA [Concomitant]
     Active Substance: BENSERAZIDE HYDROCHLORIDE\LEVODOPA
     Indication: Parkinson^s disease
     Dosage: HYDRODYNAMICALLY BALANCED SYSTEM
     Route: 065
  16. SYMMETREL [Concomitant]
     Active Substance: AMANTADINE HYDROCHLORIDE
     Indication: Product used for unknown indication
     Dosage: DOSE HAS BEEN INCREASED?FORM STRENGTH: 100 MG?ONCE A DAY
     Route: 065
  17. SYMMETREL [Concomitant]
     Active Substance: AMANTADINE HYDROCHLORIDE
     Indication: Product used for unknown indication
     Dosage: FORM STRENGTH: 30 MG
     Route: 065

REACTIONS (33)
  - Rehabilitation therapy [Not Recovered/Not Resolved]
  - Unevaluable event [Not Recovered/Not Resolved]
  - Chronic obstructive pulmonary disease [Not Recovered/Not Resolved]
  - Muscle rigidity [Not Recovered/Not Resolved]
  - On and off phenomenon [Unknown]
  - Cold sweat [Recovering/Resolving]
  - Musculoskeletal stiffness [Recovering/Resolving]
  - Discomfort [Not Recovered/Not Resolved]
  - Muscle tightness [Unknown]
  - Writer^s cramp [Not Recovered/Not Resolved]
  - Dyskinesia [Not Recovered/Not Resolved]
  - Oxygen saturation decreased [Not Recovered/Not Resolved]
  - Pneumonia aspiration [Unknown]
  - Hyperkinesia [Recovering/Resolving]
  - Feeling abnormal [Not Recovered/Not Resolved]
  - Pulmonary embolism [Not Recovered/Not Resolved]
  - Stoma site erythema [Not Recovered/Not Resolved]
  - Device issue [Unknown]
  - Walking aid user [Not Recovered/Not Resolved]
  - Muscle spasms [Recovering/Resolving]
  - Faeces hard [Recovered/Resolved]
  - Diarrhoea [Not Recovered/Not Resolved]
  - Dyschezia [Recovered/Resolved]
  - Weight decreased [Not Recovered/Not Resolved]
  - Gastrointestinal disorder [Not Recovered/Not Resolved]
  - Cognitive disorder [Unknown]
  - Abnormal faeces [Not Recovered/Not Resolved]
  - Stoma site discharge [Not Recovered/Not Resolved]
  - Stoma site pain [Not Recovered/Not Resolved]
  - Stoma site irritation [Not Recovered/Not Resolved]
  - Initial insomnia [Unknown]
  - Hypophagia [Not Recovered/Not Resolved]
  - Drug interaction [Unknown]

NARRATIVE: CASE EVENT DATE: 20230101
